FAERS Safety Report 5057316-8 (Version None)
Quarter: 2006Q3

REPORT INFORMATION
  Report Type: 
  Country: None (occurrence: None)
  Receive Date: 20060721
  Receipt Date: 20050803
  Transmission Date: 20061208
  Serious: No
  Sender: FDA-Public Use
  Company Number: US-GLAXOSMITHKLINE-A0568791A

PATIENT
  Age: 66 Year
  Sex: Female

DRUGS (12)
  1. AVANDIA [Suspect]
     Dosage: 4MG PER DAY
     Route: 048
     Dates: start: 20050803
  2. LOPRESSOR [Concomitant]
  3. NORVASC [Concomitant]
  4. DIOVAN [Concomitant]
  5. FOLTX [Concomitant]
  6. PROTONIX [Concomitant]
  7. NEURONTIN [Concomitant]
  8. ZOCOR [Concomitant]
  9. RESCUE REMEDY [Concomitant]
  10. CHROMIUM PICOLINATE [Concomitant]
  11. FLAXSEED OIL [Concomitant]
  12. CONJUGATED LINOLEIC ACID [Concomitant]

REACTIONS (1)
  - BLOOD GLUCOSE INCREASED [None]
